FAERS Safety Report 9688027 (Version 1)
Quarter: 2013Q4

REPORT INFORMATION
  Report Type: Not Available
  Country: FR (occurrence: FR)
  Receive Date: 20131114
  Receipt Date: 20131114
  Transmission Date: 20140711
  Serious: Yes (Hospitalization)
  Sender: FDA-Public Use
  Company Number: FR-ASTELLAS-2013EU009870

PATIENT
  Age: 64 Year
  Sex: Female

DRUGS (8)
  1. VESICARE [Suspect]
     Indication: URINARY INCONTINENCE
     Dosage: UNK
     Route: 048
  2. FURADANTINE [Suspect]
     Indication: URINARY TRACT INFECTION
     Dosage: 100 MG, TID
     Route: 048
     Dates: end: 20130410
  3. QUESTRAN [Suspect]
     Indication: HYPERCHOLESTEROLAEMIA
     Dosage: 2 DF, UNKNOWN/D
     Route: 048
  4. LEVOTHYROX [Suspect]
     Indication: HYPOTHYROIDISM
     Dosage: 75 UG, UID/QD
     Route: 048
  5. DUOVA [Suspect]
     Indication: MENOPAUSE
     Dosage: UNK
     Route: 048
     Dates: end: 20130413
  6. CEBUTID [Suspect]
     Dosage: UNK
     Route: 048
     Dates: end: 20130410
  7. CEBUTID [Suspect]
     Dosage: UNK
     Dates: start: 2013
  8. TROPHIGIL [Suspect]
     Dosage: 1 DF, UID/QD
     Route: 067

REACTIONS (3)
  - Hepatitis [Recovered/Resolved]
  - Transaminases increased [Recovered/Resolved]
  - Jaundice [Recovered/Resolved]
